FAERS Safety Report 24558861 (Version 1)
Quarter: 2024Q4

REPORT INFORMATION
  Report Type: Spontaneous
  Country: RO (occurrence: RO)
  Receive Date: 20241029
  Receipt Date: 20241029
  Transmission Date: 20250114
  Serious: Yes (Death, Other)
  Sender: ACCORD
  Company Number: RO-EMA-DD-20241004-7482701-080814

PATIENT
  Age: 34 Year
  Sex: Female

DRUGS (3)
  1. CARBOPLATIN [Suspect]
     Active Substance: CARBOPLATIN
     Indication: Squamous cell carcinoma of the cervix
     Dosage: AUC5 (TOTAL DOSE 415 MG IV)
     Dates: start: 20220119
  2. BEVACIZUMAB [Suspect]
     Active Substance: BEVACIZUMAB
     Indication: Cervix carcinoma stage IV
     Dosage: UNK
     Dates: start: 20221005
  3. PACLITAXEL [Concomitant]
     Active Substance: PACLITAXEL
     Indication: Cervix carcinoma stage IV
     Dosage: 175 MILLIGRAM/SQ. METER TOTAL DOSE 300 MG
     Dates: start: 20220119

REACTIONS (27)
  - Cachexia [Unknown]
  - Quadriparesis [Unknown]
  - Decubitus ulcer [Unknown]
  - Anaemia macrocytic [Unknown]
  - Hydronephrosis [Unknown]
  - Depression [Unknown]
  - Thrombocytopenia [Unknown]
  - Glomerular filtration rate decreased [Unknown]
  - Dermatitis contact [Unknown]
  - Terminal state [Unknown]
  - Dry skin [Unknown]
  - Frustration tolerance decreased [Unknown]
  - Hypotonia [Unknown]
  - Onychomycosis [Unknown]
  - Constipation [Unknown]
  - Insomnia [Unknown]
  - Spinal cord compression [Unknown]
  - Disease progression [Fatal]
  - Cervical vertebral fracture [Unknown]
  - Panic attack [Unknown]
  - Multisystem inflammatory syndrome [Unknown]
  - Escherichia urinary tract infection [Unknown]
  - Rhonchi [Unknown]
  - Spinal cord neoplasm [Unknown]
  - Anxiety [Unknown]
  - Mucosal dryness [Unknown]
  - Metastatic neoplasm [Fatal]

NARRATIVE: CASE EVENT DATE: 20230320
